FAERS Safety Report 9558912 (Version 1)
Quarter: 2013Q3

REPORT INFORMATION
  Report Type: Spontaneous
  Country: FR (occurrence: FR)
  Receive Date: 20130927
  Receipt Date: 20130927
  Transmission Date: 20140515
  Serious: Yes (Other)
  Sender: FDA-Public Use
  Company Number: FR-ROCHE-1280383

PATIENT
  Age: 90 Year
  Sex: Male

DRUGS (5)
  1. BACTRIM FORTE [Suspect]
     Indication: URINARY TRACT INFECTION
     Route: 048
     Dates: start: 20130711
  2. BACTRIM FORTE [Suspect]
     Route: 048
  3. ROCEPHINE [Suspect]
     Indication: URINARY TRACT INFECTION
     Route: 041
     Dates: start: 20130711, end: 20130809
  4. PREVISCAN (FRANCE) [Suspect]
     Indication: PRODUCT USED FOR UNKNOWN INDICATION
     Route: 048
     Dates: end: 20130802
  5. PREVISCAN (FRANCE) [Suspect]
     Route: 048

REACTIONS (2)
  - International normalised ratio increased [Recovered/Resolved]
  - Anaemia [Recovered/Resolved]
